FAERS Safety Report 12080081 (Version 1)
Quarter: 2016Q1

REPORT INFORMATION
  Report Type: Spontaneous
  Country: RS (occurrence: RS)
  Receive Date: 20160216
  Receipt Date: 20160216
  Transmission Date: 20160526
  Serious: Yes (Death, Hospitalization)
  Sender: FDA-Public Use
  Company Number: RS-EPIC PHARMA LLC-2016EPC00002

PATIENT
  Age: 24 Year
  Sex: Female

DRUGS (3)
  1. GLICLAZIDE [Suspect]
     Active Substance: GLICLAZIDE
     Dosage: 2.4 G, ONCE
  2. METFORMIN [Suspect]
     Active Substance: METFORMIN HYDROCHLORIDE
     Dosage: 10 G, ONCE
     Route: 048
  3. AMLODIPINE [Suspect]
     Active Substance: AMLODIPINE BESYLATE
     Dosage: 150 MG, ONCE
     Route: 048

REACTIONS (12)
  - Arrhythmia [Fatal]
  - Cardiac arrest [Fatal]
  - Electrocardiogram ST segment depression [None]
  - Metabolic acidosis [Fatal]
  - Anuria [Fatal]
  - Poisoning [None]
  - Intentional overdose [Fatal]
  - Bundle branch block right [None]
  - Sinus tachycardia [None]
  - Atrioventricular block first degree [None]
  - Hypotension [Fatal]
  - Hyperglycaemia [Fatal]
